FAERS Safety Report 8741979 (Version 2)
Quarter: 2012Q4

REPORT INFORMATION
  Report Type: 
  Country: US (occurrence: US)
  Receive Date: 20120824
  Receipt Date: 20120927
  Transmission Date: 20130627
  Serious: No
  Sender: FDA-Public Use
  Company Number: US-JNJFOC-20120808693

PATIENT
  Sex: Female
  Weight: 66.68 kg

DRUGS (7)
  1. INVEGA SUSTENNA [Suspect]
     Indication: SCHIZOPHRENIA
     Route: 030
  2. PAXIL [Concomitant]
     Indication: PRODUCT USED FOR UNKNOWN INDICATION
     Route: 048
  3. HYDROXYZINE [Concomitant]
     Indication: PRODUCT USED FOR UNKNOWN INDICATION
     Route: 048
  4. TRAZODONE [Concomitant]
     Indication: PRODUCT USED FOR UNKNOWN INDICATION
     Route: 048
  5. ALBUTEROL [Concomitant]
     Indication: ASTHMA
     Route: 065
  6. ADVAIR [Concomitant]
     Indication: ASTHMA
     Route: 055
  7. ALBUTEROL [Concomitant]
     Indication: ASTHMA
     Route: 065

REACTIONS (2)
  - Underdose [Recovered/Resolved]
  - Device leakage [Unknown]
